FAERS Safety Report 15365304 (Version 1)
Quarter: 2018Q3

REPORT INFORMATION
  Report Type: Spontaneous
  Country: US (occurrence: US)
  Receive Date: 20180910
  Receipt Date: 20180910
  Transmission Date: 20181010
  Serious: Yes (Other)
  Sender: FDA-Public Use
  Company Number: US-DRREDDYS-USA/USA/18/0103920

PATIENT
  Age: 55 Year
  Sex: Female
  Weight: 69.5 kg

DRUGS (1)
  1. OMEPRAZOLE. [Suspect]
     Active Substance: OMEPRAZOLE
     Indication: GASTROOESOPHAGEAL REFLUX DISEASE
     Route: 065
     Dates: start: 20180823, end: 20180904

REACTIONS (2)
  - Palpitations [Not Recovered/Not Resolved]
  - Ventricular extrasystoles [Unknown]
